FAERS Safety Report 10330386 (Version 2)
Quarter: 2014Q3

REPORT INFORMATION
  Report Type: Spontaneous
  Country: CA (occurrence: CA)
  Receive Date: 20140722
  Receipt Date: 20140722
  Transmission Date: 20150326
  Serious: Yes (Other)
  Sender: FDA-Public Use
  Company Number: CA-ROCHE-1435404

PATIENT
  Age: 29 Year
  Sex: Female

DRUGS (5)
  1. INCIVEK [Suspect]
     Active Substance: TELAPREVIR
     Indication: CHRONIC HEPATITIS C
     Route: 048
     Dates: start: 20140310
  2. RIBAVIRIN. [Suspect]
     Active Substance: RIBAVIRIN
     Indication: CHRONIC HEPATITIS C
     Route: 048
     Dates: start: 20140310
  3. PEGASYS [Suspect]
     Active Substance: PEGINTERFERON ALFA-2A
     Indication: CHRONIC HEPATITIS C
     Route: 058
     Dates: start: 20140310
  4. PEGASYS [Suspect]
     Active Substance: PEGINTERFERON ALFA-2A
     Route: 058
     Dates: start: 20140605
  5. ZOPICLONE [Concomitant]
     Active Substance: ZOPICLONE

REACTIONS (4)
  - Neutrophil count decreased [Unknown]
  - White blood cell count decreased [Unknown]
  - Insomnia [Unknown]
  - Drug dose omission [Unknown]

NARRATIVE: CASE EVENT DATE: 20140714
